FAERS Safety Report 24898780 (Version 1)
Quarter: 2025Q1

REPORT INFORMATION
  Report Type: Spontaneous
  Country: IT (occurrence: IT)
  Receive Date: 20250129
  Receipt Date: 20250129
  Transmission Date: 20250408
  Serious: Yes (Death, Life-Threatening, Hospitalization)
  Sender: HIKMA
  Company Number: IT-MLMSERVICE-20250109-PI338338-00270-1

PATIENT

DRUGS (1)
  1. METHYLPREDNISOLONE [Suspect]
     Active Substance: METHYLPREDNISOLONE
     Indication: Product used for unknown indication
     Dosage: 40 MILLIGRAM, Q12H
     Route: 065

REACTIONS (7)
  - Disseminated aspergillosis [Fatal]
  - Septic shock [Fatal]
  - Multiple organ dysfunction syndrome [Fatal]
  - Disseminated intravascular coagulation [Fatal]
  - Thrombocytopenia [Fatal]
  - Soft tissue necrosis [Fatal]
  - Cerebral aspergillosis [Fatal]

NARRATIVE: CASE EVENT DATE: 20240101
